FAERS Safety Report 5519702-9 (Version None)
Quarter: 2007Q4

REPORT INFORMATION
  Report Type: 
  Country: None (occurrence: None)
  Receive Date: 20071116
  Receipt Date: 20071106
  Transmission Date: 20080405
  Serious: Yes (Hospitalization)
  Sender: FDA-Public Use
  Company Number: US-JNJFOC-20071105599

PATIENT
  Sex: Female
  Weight: 137.44 kg

DRUGS (14)
  1. TRAMADOL HYDROCHLORIDE ER [Suspect]
     Indication: OSTEOARTHRITIS
     Route: 048
  2. MELOXICAM [Suspect]
     Route: 048
  3. MELOXICAM [Suspect]
     Indication: OSTEOARTHRITIS
     Route: 048
  4. FUROSEMIDE [Concomitant]
     Route: 065
  5. CLONIDINE [Concomitant]
     Route: 065
  6. LEXAPRO [Concomitant]
     Route: 065
  7. METFORMIN HCL [Concomitant]
     Route: 065
  8. MICARDIS HCT [Concomitant]
     Route: 065
  9. PEPCID AC [Concomitant]
     Route: 065
  10. BENADRYL [Concomitant]
     Route: 065
  11. POTASSIUM CHLORIDE [Concomitant]
     Route: 065
  12. IRON [Concomitant]
     Route: 065
  13. VITAMIN B-12 [Concomitant]
     Route: 065
  14. VITAMINS [Concomitant]
     Route: 065

REACTIONS (3)
  - CONDITION AGGRAVATED [None]
  - GASTROOESOPHAGEAL REFLUX DISEASE [None]
  - HIATUS HERNIA [None]
